FAERS Safety Report 4557423-X (Version None)
Quarter: 2005Q1

REPORT INFORMATION
  Report Type: 
  Country: None (occurrence: None)
  Receive Date: 20050120
  Receipt Date: 20050112
  Transmission Date: 20050727
  Serious: Yes (Hospitalization)
  Sender: FDA-Public Use
  Company Number: PHBS2005IT00844

PATIENT
  Age: 18 Year
  Sex: Male

DRUGS (4)
  1. STEROIDS NOS [Concomitant]
  2. TACROLIMUS [Suspect]
  3. BASILIXIMAB [Suspect]
     Indication: RENAL TRANSPLANT
  4. BASILIXIMAB [Suspect]

REACTIONS (13)
  - BLOOD CREATINE PHOSPHOKINASE INCREASED [None]
  - BLOOD LACTATE DEHYDROGENASE INCREASED [None]
  - CHROMATURIA [None]
  - DRUG LEVEL INCREASED [None]
  - GRAND MAL CONVULSION [None]
  - MUSCLE NECROSIS [None]
  - MYOGLOBINURIA [None]
  - RENAL IMPAIRMENT [None]
  - RENAL TUBULAR DISORDER [None]
  - RHABDOMYOLYSIS [None]
  - SIMPLE PARTIAL SEIZURES [None]
  - STATUS EPILEPTICUS [None]
  - TRANSAMINASES INCREASED [None]
